FAERS Safety Report 6764957-6 (Version None)
Quarter: 2010Q2

REPORT INFORMATION
  Report Type: 
  Country: None (occurrence: None)
  Receive Date: 20100609
  Receipt Date: 20100508
  Transmission Date: 20101027
  Serious: No
  Sender: FDA-Public Use
  Company Number: 2010011223

PATIENT
  Age: 5 Year
  Sex: Male
  Weight: 29.4838 kg

DRUGS (1)
  1. CHILDREN'S ZYRTEC ALLERGY [Suspect]
     Indication: HYPERSENSITIVITY
     Dosage: 1 PERFECT MEASURE CUP - A COUPLE OF DOSES, ORAL
     Route: 048
     Dates: start: 20100417, end: 20100417

REACTIONS (4)
  - INCORRECT DRUG ADMINISTRATION DURATION [None]
  - PRODUCT QUALITY ISSUE [None]
  - SOMNOLENCE [None]
  - WRONG DRUG ADMINISTERED [None]
